FAERS Safety Report 20585771 (Version 1)
Quarter: 2022Q1

REPORT INFORMATION
  Report Type: Spontaneous
  Country: US (occurrence: US)
  Receive Date: 20220312
  Receipt Date: 20220312
  Transmission Date: 20220423
  Serious: No
  Sender: FDA-Public Use
  Company Number: US-TEVA-2022-US-2008647

PATIENT
  Sex: Female

DRUGS (2)
  1. CLONIDINE [Suspect]
     Active Substance: CLONIDINE
     Indication: Insomnia
  2. CLONIDINE [Suspect]
     Active Substance: CLONIDINE
     Indication: Anxiety

REACTIONS (4)
  - Fatigue [Unknown]
  - Drug ineffective [Unknown]
  - Middle insomnia [Unknown]
  - Stress [Unknown]

NARRATIVE: CASE EVENT DATE: 20220101
